FAERS Safety Report 7324643-0 (Version None)
Quarter: 2011Q1

REPORT INFORMATION
  Report Type: 
  Country: None (occurrence: None)
  Receive Date: 20110301
  Receipt Date: 20110217
  Transmission Date: 20110831
  Serious: Yes (Other)
  Sender: FDA-Public Use
  Company Number: PHHY2011PT13710

PATIENT
  Age: 56 Year
  Sex: Female

DRUGS (2)
  1. PENICILLIN G SODIUM [Suspect]
     Dosage: 24 MU/DAY
  2. GENTAMICIN [Concomitant]
     Dosage: 160 MG, QD

REACTIONS (5)
  - RASH MACULO-PAPULAR [None]
  - AGRANULOCYTOSIS [None]
  - WHITE BLOOD CELL COUNT DECREASED [None]
  - NEUTROPENIA [None]
  - PYREXIA [None]
